FAERS Safety Report 6414733-9 (Version None)
Quarter: 2009Q4

REPORT INFORMATION
  Report Type: 
  Country: None (occurrence: None)
  Receive Date: 20091026
  Receipt Date: 20091026
  Transmission Date: 20100525
  Serious: No
  Sender: FDA-Public Use
  Company Number: None

PATIENT
  Age: 38 Year
  Sex: Female
  Weight: 53.5244 kg

DRUGS (1)
  1. DELSYM [Suspect]
     Indication: COUGH
     Dosage: 5ML 12 HOURS
     Dates: start: 20091022, end: 20091023

REACTIONS (3)
  - INTERCEPTED MEDICATION ERROR [None]
  - MEDICATION ERROR [None]
  - PRODUCT PACKAGING ISSUE [None]
